FAERS Safety Report 7686932-X (Version None)
Quarter: 2011Q3

REPORT INFORMATION
  Report Type: 
  Country: None (occurrence: None)
  Receive Date: 20110816
  Receipt Date: 20090930
  Transmission Date: 20111222
  Serious: Yes (Other)
  Sender: FDA-Public Use
  Company Number: US-BAYER-200934413NA

PATIENT
  Age: 78 Year
  Sex: Female
  Weight: 82 kg

DRUGS (12)
  1. TRASYLOL [Suspect]
     Indication: CORONARY ARTERY BYPASS
     Dosage: UNK
     Route: 042
     Dates: start: 20070910
  2. THROMBIN LOCAL SOLUTION [Concomitant]
     Indication: POST PROCEDURAL HAEMATOMA
     Dosage: UNK, INJECTION
     Dates: start: 20070807
  3. ACETYLSALICYLIC ACID SRT [Concomitant]
     Dosage: 81 MG, QD
     Route: 048
     Dates: start: 20070808
  4. TRASYLOL [Suspect]
     Indication: AORTIC VALVE REPLACEMENT
  5. METOPROLOL TARTRATE [Concomitant]
     Dosage: 25 MG, BID
     Route: 048
  6. LASIX [Concomitant]
     Dosage: 20 MG, QD
     Route: 048
     Dates: start: 20070808
  7. COUMADIN [Concomitant]
     Dosage: UNK UNK, QD
  8. CLINDAMYCIN [Concomitant]
  9. LIPITOR [Concomitant]
     Dosage: 40 MG, QD
     Route: 048
  10. CLINDAMYCIN [Concomitant]
     Dosage: 300 MG, TID
     Route: 048
     Dates: start: 20070628
  11. CLINDAMYCIN [Concomitant]
     Dosage: 150MG (3 CAPSULES 3X DAILY)
  12. LOVENOX [Concomitant]
     Dosage: 80 MG
     Route: 058
     Dates: start: 20070801

REACTIONS (10)
  - PAIN [None]
  - UNEVALUABLE EVENT [None]
  - FEAR [None]
  - INJURY [None]
  - EMOTIONAL DISTRESS [None]
  - RENAL IMPAIRMENT [None]
  - STRESS [None]
  - RENAL FAILURE [None]
  - RENAL INJURY [None]
  - ANXIETY [None]
